FAERS Safety Report 14065884 (Version 3)
Quarter: 2017Q4

REPORT INFORMATION
  Report Type: Spontaneous
  Country: JP (occurrence: JP)
  Receive Date: 20171009
  Receipt Date: 20171211
  Transmission Date: 20180321
  Serious: Yes (Hospitalization)
  Sender: FDA-Public Use
  Company Number: JP-ELI_LILLY_AND_COMPANY-JP201710000696

PATIENT
  Age: 62 Year
  Sex: Male
  Weight: 72 kg

DRUGS (5)
  1. 5-FU                               /00098801/ [Concomitant]
     Active Substance: FLUOROURACIL
     Indication: MUCINOUS ADENOCARCINOMA OF APPENDIX
     Dosage: UNK
     Route: 041
     Dates: start: 20170829
  2. RIBAVARIN [Concomitant]
     Active Substance: RIBAVIRIN
     Indication: EPISTAXIS
     Dosage: UNK
     Route: 048
     Dates: start: 2017
  3. CYRAMZA [Suspect]
     Active Substance: RAMUCIRUMAB
     Indication: MUCINOUS ADENOCARCINOMA OF APPENDIX
     Dosage: 8 MG/KG, OTHER
     Route: 041
     Dates: start: 20170829
  4. IRINOTECAN HYDROCHLORIDE. [Concomitant]
     Active Substance: IRINOTECAN HYDROCHLORIDE
     Indication: MUCINOUS ADENOCARCINOMA OF APPENDIX
     Dosage: UNK
     Route: 041
     Dates: start: 20170829
  5. LEVOFOLINATE                       /06682103/ [Concomitant]
     Active Substance: LEVOLEUCOVORIN CALCIUM
     Indication: MUCINOUS ADENOCARCINOMA OF APPENDIX
     Dosage: UNK
     Route: 041
     Dates: start: 20170829

REACTIONS (1)
  - Pulmonary oedema [Recovered/Resolved]

NARRATIVE: CASE EVENT DATE: 20171002
